FAERS Safety Report 17402262 (Version 9)
Quarter: 2024Q4

REPORT INFORMATION
  Report Type: Spontaneous
  Country: US (occurrence: US)
  Receive Date: 20200211
  Receipt Date: 20241216
  Transmission Date: 20250114
  Serious: Yes (Hospitalization, Other)
  Sender: SANOFI AVENTIS
  Company Number: US-SA-2020SA031838

PATIENT
  Age: 66 Year
  Sex: Female

DRUGS (4)
  1. FABRAZYME [Suspect]
     Active Substance: AGALSIDASE BETA
     Indication: Fabry^s disease
     Dosage: 65 MG, QOW
     Route: 041
     Dates: start: 20191213
  2. FABRAZYME [Suspect]
     Active Substance: AGALSIDASE BETA
     Dosage: 30 MG, QOW
     Route: 041
     Dates: start: 20201028
  3. FABRAZYME [Suspect]
     Active Substance: AGALSIDASE BETA
     Dosage: 30 G, QOW
     Route: 042
     Dates: start: 20191213
  4. FABRAZYME [Suspect]
     Active Substance: AGALSIDASE BETA
     Dosage: 35MG, QOW
     Route: 042
     Dates: start: 20191213

REACTIONS (4)
  - Atrial fibrillation [Unknown]
  - COVID-19 [Unknown]
  - Illness [Unknown]
  - Inappropriate schedule of product administration [Unknown]

NARRATIVE: CASE EVENT DATE: 20210101
